FAERS Safety Report 10803447 (Version 2)
Quarter: 2015Q3

REPORT INFORMATION
  Report Type: Spontaneous
  Country: DE (occurrence: DE)
  Receive Date: 20150217
  Receipt Date: 20150924
  Transmission Date: 20151125
  Serious: Yes (Other)
  Sender: FDA-Public Use
  Company Number: DE-TEVA-539913GER

PATIENT
  Sex: Female
  Weight: 50 kg

DRUGS (2)
  1. R-CHOP [Concomitant]
     Indication: NON-HODGKIN^S LYMPHOMA
  2. DOXORUBICINHYDROCHLORID TEVA 2 MG/ML KONZENTRAT ZUR HERSTELLUNG EINER [Suspect]
     Active Substance: DOXORUBICIN HYDROCHLORIDE
     Indication: NON-HODGKIN^S LYMPHOMA
     Route: 042
     Dates: start: 20141203

REACTIONS (2)
  - Application site necrosis [Recovered/Resolved with Sequelae]
  - Infusion site extravasation [Recovered/Resolved with Sequelae]

NARRATIVE: CASE EVENT DATE: 2015
